FAERS Safety Report 12219740 (Version 1)
Quarter: 2016Q1

REPORT INFORMATION
  Report Type: Report from Study
  Country: US (occurrence: US)
  Receive Date: 20160330
  Receipt Date: 20160330
  Transmission Date: 20160526
  Serious: No
  Sender: FDA-Public Use
  Company Number: PHEH2015US007092

PATIENT
  Age: 63 Year
  Sex: Male
  Weight: 120.2 kg

DRUGS (2)
  1. AFINITOR [Suspect]
     Active Substance: EVEROLIMUS
     Indication: PRODUCT USED FOR UNKNOWN INDICATION
     Dosage: 10 MG, QD
     Route: 048
     Dates: start: 20150315, end: 20150403
  2. AFINITOR [Suspect]
     Active Substance: EVEROLIMUS
     Dosage: 5 MG, UNK
     Route: 048

REACTIONS (1)
  - Stomatitis [Recovered/Resolved]

NARRATIVE: CASE EVENT DATE: 20150329
